FAERS Safety Report 8951643 (Version 1)
Quarter: 2012Q4

REPORT INFORMATION
  Report Type: Report from Study
  Country: US (occurrence: US)
  Receive Date: 20121204
  Receipt Date: 20121204
  Transmission Date: 20130627
  Serious: Yes (Hospitalization)
  Sender: FDA-Public Use
  Company Number: US-ROCHE-1163673

PATIENT
  Sex: Male
  Weight: 64.47 kg

DRUGS (1)
  1. CAPECITABINE [Suspect]
     Indication: COLORECTAL CANCER METASTATIC
     Dosage: 1500 mg every morning and 1000 mg every evening
     Route: 048
     Dates: start: 201210, end: 201211

REACTIONS (4)
  - Genital ulceration [Unknown]
  - Skin ulcer [Unknown]
  - Haemorrhage [Unknown]
  - Asthenia [Unknown]
